FAERS Safety Report 9837079 (Version 1)
Quarter: 2014Q1

REPORT INFORMATION
  Report Type: Spontaneous
  Country: GB (occurrence: GB)
  Receive Date: 20140123
  Receipt Date: 20140123
  Transmission Date: 20141002
  Serious: Yes (Hospitalization, Other)
  Sender: FDA-Public Use
  Company Number: GB-ELI_LILLY_AND_COMPANY-GB201401005012

PATIENT
  Age: 23 Year
  Sex: Male

DRUGS (1)
  1. STRATTERA [Suspect]
     Indication: ATTENTION DEFICIT/HYPERACTIVITY DISORDER
     Dosage: 25 MG, UNKNOWN
     Route: 048
     Dates: start: 20131210, end: 20131231

REACTIONS (13)
  - Gastrointestinal disorder [Unknown]
  - Urinary tract disorder [Unknown]
  - Renal disorder [Unknown]
  - Photosensitivity reaction [Unknown]
  - Bladder dysfunction [Unknown]
  - Malaise [Not Recovered/Not Resolved]
  - Drug intolerance [Unknown]
  - Back pain [Unknown]
  - Vision blurred [Unknown]
  - Nausea [Unknown]
  - Lethargy [Unknown]
  - Syncope [Unknown]
  - Headache [Unknown]
